FAERS Safety Report 9168641 (Version 4)
Quarter: 2014Q1

REPORT INFORMATION
  Report Type: Report from Study
  Country: CA (occurrence: CA)
  Receive Date: 20130318
  Receipt Date: 20140213
  Transmission Date: 20141002
  Serious: Yes (Hospitalization, Disabling, Other)
  Sender: FDA-Public Use
  Company Number: PHHY2013CA025962

PATIENT
  Age: 77 Year
  Sex: Female

DRUGS (9)
  1. ACLASTA [Suspect]
     Indication: OSTEOPOROSIS
     Dosage: UNK
     Dates: start: 2009
  2. BISOPROLOL [Concomitant]
  3. RAMIPRIL [Concomitant]
  4. CALCIUM [Concomitant]
  5. VITAMIN D [Concomitant]
  6. DEXILANT [Concomitant]
  7. ASA [Concomitant]
  8. SYNTHROID [Concomitant]
  9. METOCLOPRAMIDE [Concomitant]

REACTIONS (10)
  - Cholangiocarcinoma [Recovering/Resolving]
  - Jaundice [Recovering/Resolving]
  - Nausea [Recovering/Resolving]
  - Vomiting [Recovering/Resolving]
  - Urinary tract infection [Recovered/Resolved with Sequelae]
  - Cholangitis [Recovered/Resolved with Sequelae]
  - Cholestasis [Recovered/Resolved with Sequelae]
  - Pyrexia [Recovered/Resolved with Sequelae]
  - Neoplasm progression [Recovered/Resolved with Sequelae]
  - Benign hepatic neoplasm [Not Recovered/Not Resolved]
